FAERS Safety Report 7123990-5 (Version None)
Quarter: 2010Q4

REPORT INFORMATION
  Report Type: 
  Country: None (occurrence: None)
  Receive Date: 20101126
  Receipt Date: 20101116
  Transmission Date: 20110411
  Serious: No
  Sender: FDA-Public Use
  Company Number: US-PFIZER INC-2010154361

PATIENT
  Sex: Female

DRUGS (5)
  1. GABAPENTIN [Suspect]
     Dosage: UNK
  2. VYTORIN [Concomitant]
  3. IMDUR [Concomitant]
  4. TOPROL-XL [Concomitant]
  5. GLUCOPHAGE [Concomitant]

REACTIONS (2)
  - DRUG INEFFECTIVE [None]
  - PARAESTHESIA ORAL [None]
